FAERS Safety Report 4736885-9 (Version None)
Quarter: 2005Q3

REPORT INFORMATION
  Report Type: 
  Country: None (occurrence: None)
  Receive Date: 20050808
  Receipt Date: 20050714
  Transmission Date: 20060218
  Serious: Yes (Death)
  Sender: FDA-Public Use
  Company Number: GB-GLAXOSMITHKLINE-B0387835A

PATIENT
  Age: 37 Year
  Sex: Female
  Weight: 26 kg

DRUGS (6)
  1. SERETIDE [Suspect]
     Route: 055
     Dates: start: 20040205
  2. ELOCON [Concomitant]
  3. OILATUM [Concomitant]
  4. SALAMOL [Concomitant]
     Route: 055
  5. PREDNISOLONE [Concomitant]
     Dosage: 5MG SIX TIMES PER DAY
     Dates: start: 20040804
  6. NEBULISED SALBUTAMOL [Concomitant]
     Dates: start: 20040804

REACTIONS (2)
  - ASTHMA [None]
  - CIRCULATORY COLLAPSE [None]
